FAERS Safety Report 22517990 (Version 3)
Quarter: 2023Q2

REPORT INFORMATION
  Report Type: Spontaneous
  Country: JP (occurrence: JP)
  Receive Date: 20230605
  Receipt Date: 20230609
  Transmission Date: 20230722
  Serious: Yes (Other)
  Sender: FDA-Public Use
  Company Number: JP-BRISTOL-MYERS SQUIBB COMPANY-2023-067674

PATIENT

DRUGS (1)
  1. ORENCIA [Suspect]
     Active Substance: ABATACEPT
     Indication: Product used for unknown indication
     Dosage: ORENCIA AUTOINJECTOR FOR S.C. INJECTION 125 MG/1 ML
     Route: 058

REACTIONS (3)
  - Device difficult to use [Unknown]
  - Needle issue [Unknown]
  - Device safety feature issue [Unknown]
